FAERS Safety Report 23432259 (Version 2)
Quarter: 2024Q1

REPORT INFORMATION
  Report Type: Spontaneous
  Country: US (occurrence: US)
  Receive Date: 20240123
  Receipt Date: 20240214
  Transmission Date: 20240410
  Serious: No
  Sender: FDA-Public Use
  Company Number: US-MYLANLABS-2023M1138961

PATIENT
  Sex: Male
  Weight: 175 kg

DRUGS (1)
  1. FENTANYL TRANSDERMAL SYSTEM [Suspect]
     Active Substance: FENTANYL
     Indication: Pain
     Dosage: 50 MICROGRAM  APPLY 1 PATCH TOPICALLY EVERY 48 HOURS
     Route: 062

REACTIONS (3)
  - Drug ineffective [Unknown]
  - Device issue [Unknown]
  - Product quality issue [Unknown]
